FAERS Safety Report 4299802-4 (Version None)
Quarter: 2004Q1

REPORT INFORMATION
  Report Type: 
  Country: None (occurrence: None)
  Receive Date: 20040219
  Receipt Date: 20030911
  Transmission Date: 20041129
  Serious: Yes (Death, Life-Threatening, Other)
  Sender: FDA-Public Use
  Company Number: WAES 0309GBR00116

PATIENT
  Age: 86 Year
  Sex: Female

DRUGS (9)
  1. FOSAMAX [Suspect]
     Indication: OSTEOPOROSIS
     Route: 048
     Dates: start: 20021030, end: 20021120
  2. AMITRIPTYLINE HYDROCHLORIDE [Concomitant]
     Route: 048
     Dates: start: 20021030, end: 20021126
  3. ASPIRIN [Concomitant]
     Route: 048
     Dates: start: 20021030, end: 20021120
  4. CALCIUM CARBONATE AND CHOLECALCIFEROL [Concomitant]
     Route: 048
     Dates: start: 20021030, end: 20021126
  5. FERROUS SULFATE [Concomitant]
     Route: 048
     Dates: start: 20021030, end: 20021121
  6. MELOXICAM [Concomitant]
     Route: 048
     Dates: start: 20021030, end: 20021119
  7. RAMIPRIL [Concomitant]
     Route: 048
  8. SIMVASTATIN [Concomitant]
     Route: 048
     Dates: start: 20021030, end: 20021126
  9. VENLAFAXINE HYDROCHLORIDE [Concomitant]
     Route: 048
     Dates: start: 20021030, end: 20021126

REACTIONS (4)
  - DEATH [None]
  - GASTROINTESTINAL HAEMORRHAGE [None]
  - HAEMATEMESIS [None]
  - OESOPHAGITIS [None]
